FAERS Safety Report 6491771-1 (Version None)
Quarter: 2009Q4

REPORT INFORMATION
  Report Type: 
  Country: None (occurrence: None)
  Receive Date: 20091210
  Receipt Date: 20091130
  Transmission Date: 20100525
  Serious: Yes (Hospitalization)
  Sender: FDA-Public Use
  Company Number: 233678J09USA

PATIENT
  Age: 45 Year
  Sex: Female

DRUGS (1)
  1. REBIF [Suspect]
     Indication: MULTIPLE SCLEROSIS
     Dosage: 44 MCG,  3 IN 1 WEEKS, SUBCUTANEOUS
     Route: 058
     Dates: start: 20090101, end: 20090408

REACTIONS (5)
  - ABASIA [None]
  - ASTHENIA [None]
  - DIZZINESS [None]
  - EATING DISORDER [None]
  - FALL [None]
